FAERS Safety Report 6728103-7 (Version None)
Quarter: 2010Q2

REPORT INFORMATION
  Report Type: 
  Country: None (occurrence: None)
  Receive Date: 20100517
  Receipt Date: 20100513
  Transmission Date: 20101027
  Serious: Yes (Other)
  Sender: FDA-Public Use
  Company Number: GB-BRISTOL-MYERS SQUIBB COMPANY-14478119

PATIENT
  Age: 26 Year
  Sex: Female

DRUGS (3)
  1. SUSTIVA [Suspect]
     Indication: HIV INFECTION
     Dosage: AT NIGHT ONLY
     Route: 048
     Dates: start: 20070808, end: 20080202
  2. TRUVADA [Suspect]
     Indication: HIV INFECTION
     Dosage: 09OCT07 TO 11OCT07
     Route: 048
     Dates: start: 20070808
  3. KALETRA [Suspect]
     Indication: HIV INFECTION
     Route: 048
     Dates: start: 20080206

REACTIONS (4)
  - ANAEMIA [None]
  - CAESAREAN SECTION [None]
  - NORMAL NEWBORN [None]
  - PREGNANCY [None]
